FAERS Safety Report 5295095-X (Version None)
Quarter: 2007Q1

REPORT INFORMATION
  Report Type: 
  Country: None (occurrence: None)
  Receive Date: 20070201
  Receipt Date: 20061019
  Transmission Date: 20070707
  Serious: No
  Sender: FDA-Public Use
  Company Number: 2006PV023582

PATIENT
  Age: 43 Year
  Sex: Male
  Weight: 106.5953 kg

DRUGS (4)
  1. BYETTA [Suspect]
     Indication: DIABETES MELLITUS NON-INSULIN-DEPENDENT
     Dosage: 5 MCG; BID; SC
     Route: 058
     Dates: start: 20060922
  2. AVANDIA [Concomitant]
  3. METFORMIN HCL [Concomitant]
  4. CORTISONE INJECTION [Concomitant]

REACTIONS (9)
  - BLOOD GLUCOSE INCREASED [None]
  - DECREASED APPETITE [None]
  - INJECTION SITE BRUISING [None]
  - INJECTION SITE NODULE [None]
  - INJECTION SITE PAIN [None]
  - STRESS [None]
  - THERAPEUTIC RESPONSE UNEXPECTED [None]
  - VOMITING [None]
  - WEIGHT DECREASED [None]
